FAERS Safety Report 6974806-9 (Version None)
Quarter: 2010Q3

REPORT INFORMATION
  Report Type: 
  Country: None (occurrence: None)
  Receive Date: 20100909
  Receipt Date: 20081206
  Transmission Date: 20110219
  Serious: No
  Sender: FDA-Public Use
  Company Number: US-WYE-H07352408

PATIENT
  Sex: Male

DRUGS (2)
  1. PRISTIQ [Suspect]
     Indication: DEPRESSION
     Route: 048
  2. ALCOHOL [Interacting]
     Dosage: AMOUNT UNSPECIFIED

REACTIONS (2)
  - ABNORMAL BEHAVIOUR [None]
  - ALCOHOL INTERACTION [None]
